FAERS Safety Report 4861340-5 (Version None)
Quarter: 2005Q4

REPORT INFORMATION
  Report Type: 
  Country: None (occurrence: None)
  Receive Date: 20051220
  Receipt Date: 20050126
  Transmission Date: 20060501
  Serious: Yes (Hospitalization, Other)
  Sender: FDA-Public Use
  Company Number: US-MERCK-0501USA04296

PATIENT
  Age: 61 Year
  Sex: Male
  Weight: 64 kg

DRUGS (9)
  1. VIOXX [Suspect]
     Indication: ARTHRITIS
     Route: 048
     Dates: start: 19990101, end: 20040101
  2. VIOXX [Suspect]
     Route: 048
     Dates: start: 20050101
  3. ATROVENT [Concomitant]
     Route: 065
  4. FLOVENT [Concomitant]
     Route: 065
  5. CEPHALEXIN [Concomitant]
     Route: 048
  6. HYZAAR [Concomitant]
     Route: 048
  7. CLONAZEPAM [Concomitant]
     Route: 048
  8. PLAVIX [Concomitant]
     Route: 048
  9. PNEUMOVAX (PNEUMOCOCCAL 14V POLYSACCHARIDE VACCINE) [Concomitant]
     Route: 065
     Dates: start: 20020101

REACTIONS (26)
  - ANGINA PECTORIS [None]
  - ANGINA UNSTABLE [None]
  - AORTIC ANEURYSM [None]
  - APPENDICITIS [None]
  - ARTERIAL OCCLUSIVE DISEASE [None]
  - CARDIAC DISORDER [None]
  - CAROTID ARTERY DISEASE [None]
  - CAROTID ARTERY STENOSIS [None]
  - CEREBROVASCULAR ACCIDENT [None]
  - CHEST PAIN [None]
  - CHRONIC OBSTRUCTIVE PULMONARY DISEASE [None]
  - CORONARY ARTERY DISEASE [None]
  - DEEP VEIN THROMBOSIS [None]
  - DIZZINESS [None]
  - HYPERKINESIA [None]
  - INSOMNIA [None]
  - INTERMITTENT CLAUDICATION [None]
  - LOW DENSITY LIPOPROTEIN INCREASED [None]
  - NERVOUSNESS [None]
  - PROCEDURAL PAIN [None]
  - PULMONARY EMBOLISM [None]
  - SUBCLAVIAN ARTERY STENOSIS [None]
  - SYNOVIAL CYST [None]
  - THROMBOSIS [None]
  - TRANSIENT ISCHAEMIC ATTACK [None]
  - VENTRICULAR DYSFUNCTION [None]
